FAERS Safety Report 4851122-2 (Version None)
Quarter: 2005Q4

REPORT INFORMATION
  Report Type: 
  Country: None (occurrence: None)
  Receive Date: 20051212
  Receipt Date: 20051202
  Transmission Date: 20060501
  Serious: Yes (Death, Life-Threatening, Hospitalization)
  Sender: FDA-Public Use
  Company Number: GB-BRISTOL-MYERS SQUIBB COMPANY-13202205

PATIENT
  Age: 60 Year
  Sex: Female
  Weight: 71 kg

DRUGS (8)
  1. CISPLATIN [Suspect]
     Indication: OESOPHAGEAL CARCINOMA
     Route: 042
     Dates: start: 20050801, end: 20050801
  2. FLUOROURACIL [Concomitant]
  3. RAMIPRIL [Suspect]
     Indication: HYPERTENSION
     Route: 048
     Dates: start: 20050804, end: 20050808
  4. BENDROFLUAZIDE [Concomitant]
     Indication: HYPERTENSION
     Route: 048
     Dates: start: 20050804, end: 20050808
  5. AMLODIPINE [Concomitant]
     Indication: HYPERTENSION
     Route: 048
     Dates: start: 20050804, end: 20050808
  6. LANSOPRAZOLE [Concomitant]
     Route: 048
     Dates: end: 20050814
  7. SYMBICORT [Concomitant]
     Indication: CHRONIC OBSTRUCTIVE PULMONARY DISEASE
     Route: 055
     Dates: end: 20050814
  8. SPIRIVA [Concomitant]

REACTIONS (2)
  - RENAL FAILURE [None]
  - SEPSIS [None]
